FAERS Safety Report 13340352 (Version 1)
Quarter: 2017Q1

REPORT INFORMATION
  Report Type: Spontaneous
  Country: US (occurrence: US)
  Receive Date: 20170316
  Receipt Date: 20170316
  Transmission Date: 20170428
  Serious: No
  Sender: FDA-Public Use
  Company Number: US-LEO PHARMA-300238

PATIENT
  Age: 66 Year
  Sex: Female

DRUGS (1)
  1. PICATO [Suspect]
     Active Substance: INGENOL MEBUTATE
     Indication: ACTINIC KERATOSIS
     Route: 061
     Dates: start: 20170305, end: 20170307

REACTIONS (5)
  - Application site discharge [Not Recovered/Not Resolved]
  - Inappropriate schedule of drug administration [Unknown]
  - Eye swelling [Not Recovered/Not Resolved]
  - Application site erythema [Not Recovered/Not Resolved]
  - Eyelid oedema [Not Recovered/Not Resolved]

NARRATIVE: CASE EVENT DATE: 20170307
